FAERS Safety Report 8206362-1 (Version None)
Quarter: 2012Q1

REPORT INFORMATION
  Report Type: 
  Country: None (occurrence: None)
  Receive Date: 20120313
  Receipt Date: 20120227
  Transmission Date: 20120608
  Serious: Yes (Hospitalization)
  Sender: FDA-Public Use
  Company Number: PHHY2012HU016922

PATIENT
  Sex: Female

DRUGS (5)
  1. DUOPRI [Concomitant]
     Dosage: 1 DF, DAILY
  2. CARDILOPIN [Concomitant]
     Dosage: 1 DF, DAILY
  3. LETROZOLE [Suspect]
     Indication: BREAST CANCER
     Dosage: 2.5 MG, DAILY
     Dates: start: 20090701
  4. LEVOTHYROXINE SODIUM [Concomitant]
     Dosage: 75 M, DAILY
  5. CARVEDILOL [Concomitant]
     Dosage: 1 DF, DAILY

REACTIONS (1)
  - LUMBAR HERNIA [None]
